FAERS Safety Report 18318563 (Version 1)
Quarter: 2020Q3

REPORT INFORMATION
  Report Type: Spontaneous
  Country: DE (occurrence: DE)
  Receive Date: 20200928
  Receipt Date: 20200928
  Transmission Date: 20201103
  Serious: Yes (Hospitalization, Other)
  Sender: FDA-Public Use
  Company Number: DE-TEVA-2020-DE-1831234

PATIENT
  Age: 19 Year
  Sex: Male

DRUGS (14)
  1. DOXORUBICIN [Suspect]
     Active Substance: DOXORUBICIN
     Dosage: NK MG, LAST 29?JUN?2020
     Route: 065
     Dates: start: 20200629
  2. PANTOPRAZOL [Concomitant]
     Active Substance: PANTOPRAZOLE SODIUM
     Dosage: 40 MILLIGRAM DAILY; 1?0?0?0
     Route: 048
  3. PREDNISOLON [Concomitant]
     Active Substance: PREDNISOLONE
     Dosage: LETZTE 29062020
  4. RITUXIMAB. [Suspect]
     Active Substance: RITUXIMAB
     Dosage: NK MG, LAST29?JUN?2020
     Route: 065
     Dates: start: 20200629
  5. CYCLOPHOSPHAMID [Suspect]
     Active Substance: CYCLOPHOSPHAMIDE
     Dosage: NK MG, LAST 29?JUN?2020
     Route: 065
     Dates: start: 20200629
  6. TILIDINE/NALOXONE [Concomitant]
     Active Substance: NALOXONE HYDROCHLORIDE\TILIDINE HYDROCHLORIDE
     Dosage: 1 DOSAGE FORMS DAILY; 4|50 MG, 1?0?0?0
     Route: 048
  7. LEVOTHYROXIN?NATRIUM [Concomitant]
     Active Substance: LEVOTHYROXINE SODIUM
     Dosage: .5 DOSAGE FORMS DAILY; 50 MICROGRAM, 0.5?0?0?0
     Route: 048
  8. ALLOPURINOL. [Concomitant]
     Active Substance: ALLOPURINOL
     Dosage: 300 MILLIGRAM DAILY; 1?0?0?0
     Route: 048
  9. ONDANSETRON [Concomitant]
     Active Substance: ONDANSETRON
     Dosage: 16 MILLIGRAM DAILY; 1?0?1?0
     Route: 048
  10. VINCRISTIN [Suspect]
     Active Substance: VINCRISTINE
     Dosage: NK MG, LAST 29?JUN?2020
     Route: 065
     Dates: start: 20200629
  11. METOPROLOL. [Concomitant]
     Active Substance: METOPROLOL
     Dosage: 47.5 MILLIGRAM DAILY; 1?0?1?0
     Route: 048
  12. PREDNISOLON [Concomitant]
     Active Substance: PREDNISOLONE
     Dosage: 10 MG, 1?0.5?0?0
     Route: 048
  13. MCP [Concomitant]
     Active Substance: METOCLOPRAMIDE HYDROCHLORIDE
     Dosage: 30 MILLIGRAM DAILY; 1?1?1?0
     Route: 048
  14. COTRIM?CT 800MG/160MG [Concomitant]
     Active Substance: SULFAMETHOXAZOLE\TRIMETHOPRIM
     Dosage: 800 | 160 MG / WEEK, 1X MON WED FRI
     Route: 048

REACTIONS (5)
  - Pericardial effusion [Unknown]
  - Chest pain [Recovering/Resolving]
  - Localised infection [Recovering/Resolving]
  - Pericarditis [Unknown]
  - Musculoskeletal pain [Recovering/Resolving]
